FAERS Safety Report 7800285 (Version 5)
Quarter: 2013Q4

REPORT INFORMATION
  Report Type: Report from Study
  Country: DE (occurrence: DE)
  Receive Date: 20110204
  Receipt Date: 20131015
  Transmission Date: 20140711
  Serious: Yes (Death, Hospitalization)
  Sender: FDA-Public Use
  Company Number: DE-B.I. PHARMACEUTICALS,INC./RIDGEFIELD-2011-DE-00871DE

PATIENT
  Age: 74 Year
  Sex: Male
  Weight: 80 kg

DRUGS (16)
  1. BRONCHORETARD [Concomitant]
     Indication: CHRONIC OBSTRUCTIVE PULMONARY DISEASE
     Dosage: 400 MG
     Route: 048
     Dates: start: 2005
  2. ASS [Concomitant]
     Indication: COR PULMONALE
     Dosage: 100 MG
     Route: 048
     Dates: start: 201012
  3. BELOC-ZOK MITE [Concomitant]
     Indication: ATRIAL FLUTTER
     Dosage: 47.5 MG
     Route: 048
     Dates: start: 201012
  4. DELIX [Concomitant]
     Indication: COR PULMONALE
     Dosage: 1.25 MG
     Route: 048
     Dates: start: 201012
  5. SIMVA [Concomitant]
     Indication: PROPHYLAXIS
     Dosage: 20 MG
     Route: 048
     Dates: start: 201012
  6. TOREM [Concomitant]
     Indication: ATRIAL FLUTTER
     Dosage: 20 MG
     Route: 048
     Dates: start: 201012
  7. ALNA [Concomitant]
     Indication: PROSTATIC ADENOMA
     Dosage: 0.4 MG
     Route: 048
     Dates: start: 201012
  8. ATOSIL [Concomitant]
     Indication: ATRIAL FLUTTER
     Dosage: 300 MG
     Route: 048
     Dates: start: 201012
  9. SPIRIVA [Concomitant]
     Indication: CHRONIC OBSTRUCTIVE PULMONARY DISEASE
     Dosage: 18 MCG
     Route: 055
     Dates: start: 201012
  10. VIANI [Concomitant]
     Indication: CHRONIC OBSTRUCTIVE PULMONARY DISEASE
     Dosage: STR.: 50/150MCG, D. DOSE: 100/300 MCG
     Route: 055
     Dates: start: 201012
  11. BEROTEC [Concomitant]
     Indication: CHRONIC OBSTRUCTIVE PULMONARY DISEASE
     Dosage: PRN
     Route: 055
     Dates: start: 201012
  12. CLEXANE [Concomitant]
     Indication: ATRIAL FLUTTER
     Dosage: 1 MG
     Route: 058
     Dates: start: 201012
  13. TIOTROPIUM BROMIDE [Suspect]
     Indication: CHRONIC OBSTRUCTIVE PULMONARY DISEASE
     Dosage: 18 MCG
     Route: 055
     Dates: start: 20100602, end: 20101207
  14. SALMETEROL [Suspect]
     Indication: CHRONIC OBSTRUCTIVE PULMONARY DISEASE
     Dosage: 100 MCG
     Route: 055
     Dates: start: 20100602, end: 20101207
  15. FLUTICASONE [Suspect]
     Indication: CHRONIC OBSTRUCTIVE PULMONARY DISEASE
     Dosage: 1000 MCG
     Route: 055
     Dates: start: 20100709, end: 20101207
  16. SALBUTAMOL [Suspect]
     Indication: CHRONIC OBSTRUCTIVE PULMONARY DISEASE
     Dosage: RT:PRN
     Route: 055
     Dates: start: 20100602, end: 20101207

REACTIONS (4)
  - Atrial flutter [Recovered/Resolved]
  - Urinary retention [Recovered/Resolved]
  - Prostatic adenoma [Unknown]
  - Sudden death [Fatal]
